FAERS Safety Report 10098139 (Version 1)
Quarter: 2014Q2

REPORT INFORMATION
  Report Type: Spontaneous
  Country: ID (occurrence: None)
  Receive Date: 20140421
  Receipt Date: 20140421
  Transmission Date: 20141212
  Serious: Yes (Hospitalization)
  Sender: FDA-Public Use
  Company Number: 2014P1003123

PATIENT
  Age: 25 Year
  Sex: Female

DRUGS (4)
  1. RIFAMPIN [Suspect]
     Indication: PULMONARY TUBERCULOSIS
     Route: 048
     Dates: start: 201201, end: 2012
  2. ISONIAZID [Suspect]
     Indication: PULMONARY TUBERCULOSIS
     Dates: start: 201201, end: 2012
  3. ETHAMBUTOL [Concomitant]
  4. PYRAZINAMIDE [Concomitant]

REACTIONS (10)
  - Pruritus generalised [None]
  - Eyelid oedema [None]
  - Lip swelling [None]
  - Pyrexia [None]
  - Dyspnoea [None]
  - Palpitations [None]
  - Anaphylactic reaction [None]
  - Atrioventricular block [None]
  - Ejection fraction decreased [None]
  - Hypotension [None]
